FAERS Safety Report 12125054 (Version 4)
Quarter: 2016Q2

REPORT INFORMATION
  Report Type: Spontaneous
  Country: JP (occurrence: JP)
  Receive Date: 20160229
  Receipt Date: 20160516
  Transmission Date: 20160815
  Serious: Yes (Death, Life-Threatening)
  Sender: FDA-Public Use
  Company Number: JP-ROCHE-1717571

PATIENT
  Age: 75 Year
  Sex: Female
  Weight: 33 kg

DRUGS (6)
  1. ELPLAT [Suspect]
     Active Substance: OXALIPLATIN
     Indication: COLON CANCER
     Dosage: SINGLE DOSE
     Route: 041
     Dates: start: 20160204, end: 20160204
  2. EMEND [Concomitant]
     Active Substance: APREPITANT
     Indication: PROPHYLAXIS
     Route: 048
     Dates: start: 20160205, end: 20160206
  3. XELODA [Suspect]
     Active Substance: CAPECITABINE
     Indication: COLON CANCER
     Route: 048
     Dates: start: 20160204, end: 20160214
  4. EMEND [Concomitant]
     Active Substance: APREPITANT
     Indication: PROPHYLAXIS
     Dosage: SINGLE DOSE
     Route: 048
     Dates: start: 20160204, end: 20160204
  5. GRANISETRON [Concomitant]
     Active Substance: GRANISETRON
     Indication: PROPHYLAXIS
     Dosage: SINGLE DOSE
     Route: 041
     Dates: start: 20160204, end: 20160204
  6. DEXART [Concomitant]
     Active Substance: DEXAMETHASONE SODIUM PHOSPHATE
     Indication: PROPHYLAXIS
     Dosage: SINGLE DOSE
     Route: 041
     Dates: start: 20160204, end: 20160204

REACTIONS (9)
  - White blood cell count decreased [Fatal]
  - Sepsis [Fatal]
  - Acute kidney injury [Fatal]
  - Neutrophil count decreased [Fatal]
  - Disseminated intravascular coagulation [Fatal]
  - Decreased appetite [Unknown]
  - Dehydration [Not Recovered/Not Resolved]
  - Septic shock [Fatal]
  - Platelet count decreased [Fatal]

NARRATIVE: CASE EVENT DATE: 20160214
